FAERS Safety Report 18445535 (Version 1)
Quarter: 2020Q4

REPORT INFORMATION
  Report Type: Other
  Country: US (occurrence: US)
  Receive Date: 20201030
  Receipt Date: 20201030
  Transmission Date: 20210114
  Serious: Yes (Hospitalization)
  Sender: FDA-Public Use
  Company Number: US-EMD SERONO-9194730

PATIENT
  Age: 46 Year
  Sex: Male

DRUGS (2)
  1. PHENTERMINE. [Concomitant]
     Active Substance: PHENTERMINE
     Indication: OBESITY
  2. CHORIOGONADOTROPIN ALFA [Suspect]
     Active Substance: CHORIOGONADOTROPIN ALFA
     Indication: OBESITY

REACTIONS (4)
  - Pulmonary embolism [Unknown]
  - Intentional product misuse [Unknown]
  - Right ventricular dysfunction [Unknown]
  - Deep vein thrombosis [Unknown]
